FAERS Safety Report 10248499 (Version 1)
Quarter: 2014Q2

REPORT INFORMATION
  Report Type: Report from Study
  Country: BR (occurrence: BR)
  Receive Date: 20140620
  Receipt Date: 20140620
  Transmission Date: 20141212
  Serious: Yes (Hospitalization)
  Sender: FDA-Public Use
  Company Number: BR-SHIRE-BR201402960

PATIENT
  Age: 15 Year
  Sex: Male

DRUGS (2)
  1. IDURSULFASE [Suspect]
     Indication: MUCOPOLYSACCHARIDOSIS II
     Dosage: UNK, UNKNOWN
     Route: 065
     Dates: start: 20050209, end: 20070824
  2. IDURSULFASE [Suspect]
     Dosage: UNK, 1X/WEEK
     Route: 041

REACTIONS (1)
  - Adverse event [Recovered/Resolved]
